FAERS Safety Report 19419751 (Version 1)
Quarter: 2021Q2

REPORT INFORMATION
  Report Type: Spontaneous
  Country: CA (occurrence: CA)
  Receive Date: 20210616
  Receipt Date: 20210616
  Transmission Date: 20210717
  Serious: Yes (Hospitalization)
  Sender: FDA-Public Use
  Company Number: CA-ROCHE-2846744

PATIENT
  Age: 58 Year
  Sex: Female
  Weight: 100 kg

DRUGS (1)
  1. TECENTRIQ [Suspect]
     Active Substance: ATEZOLIZUMAB
     Indication: COLON CANCER METASTATIC
     Dosage: ONGOING
     Route: 041
     Dates: start: 201611

REACTIONS (1)
  - Respiratory failure [Recovered/Resolved]

NARRATIVE: CASE EVENT DATE: 20210211
